FAERS Safety Report 19573071 (Version 1)
Quarter: 2021Q3

REPORT INFORMATION
  Report Type: Spontaneous
  Country: US (occurrence: US)
  Receive Date: 20210716
  Receipt Date: 20210716
  Transmission Date: 20211014
  Serious: Yes (Death)
  Sender: FDA-Public Use
  Company Number: US-FRESENIUS MEDICAL CARE RENAL THERAPIES GROUP-FMC-2107-001144

PATIENT
  Age: 72 Year
  Sex: Male
  Weight: 75 kg

DRUGS (3)
  1. DELFLEX WITH DEXTROSE 2.5% LOW MAGNESIUM LOW CALCIUM [Suspect]
     Active Substance: CALCIUM CHLORIDE\DEXTROSE\MAGNESIUM CHLORIDE\SODIUM CHLORIDE\SODIUM LACTATE
     Indication: END STAGE RENAL DISEASE
     Dosage: (TIDAL) 1.5%, 2.5% AND 4.25% DELFLEX, FILLS 6, FILL VOLUME 2200 ML, SINCE UNKNOWN DATE
     Route: 033
  2. DELFLEX WITH DEXTROSE 1.5% LOW MAGNESIUM LOW CALCIUM [Suspect]
     Active Substance: CALCIUM CHLORIDE\DEXTROSE\MAGNESIUM CHLORIDE\SODIUM CHLORIDE\SODIUM LACTATE
     Indication: END STAGE RENAL DISEASE
     Dosage: (TIDAL) 1.5%, 2.5% AND 4.25% DELFLEX, FILLS 6, FILL VOLUME 2200 ML, SINCE UNKNOWN DATE
     Route: 033
  3. DELFLEX WITH DEXTROSE 4.25% LOW MAGNESIUM LOW CALCIUM [Suspect]
     Active Substance: CALCIUM CHLORIDE\DEXTROSE\MAGNESIUM CHLORIDE\SODIUM CHLORIDE\SODIUM LACTATE
     Indication: END STAGE RENAL DISEASE
     Dosage: (TIDAL) 1.5%, 2.5% AND 4.25% DELFLEX, FILLS 6, FILL VOLUME 2200 ML, SINCE UNKNOWN DATE
     Route: 033

REACTIONS (1)
  - Death [Fatal]
